FAERS Safety Report 9248470 (Version 4)
Quarter: 2013Q3

REPORT INFORMATION
  Report Type: Spontaneous
  Country: US (occurrence: US)
  Receive Date: 20130423
  Receipt Date: 20130716
  Transmission Date: 20140515
  Serious: Yes (Hospitalization, Other)
  Sender: FDA-Public Use
  Company Number: US-MERCK-1304USA010577

PATIENT
  Age: 69 Year
  Sex: Male

DRUGS (6)
  1. PEGINTRON [Suspect]
     Indication: HEPATITIS C
     Dosage: REDIPEN; 150 MCG/ 0.5 ML
     Dates: start: 20130214, end: 20130401
  2. REBETOL [Suspect]
     Indication: HEPATITIS C
     Dosage: UNK
     Route: 048
     Dates: start: 20130214, end: 20130401
  3. VICTRELIS [Suspect]
     Indication: HEPATITIS C
     Dosage: 800 MG, Q8H
     Route: 048
     Dates: start: 20130315, end: 20130401
  4. TAMSULOZIN [Concomitant]
     Dosage: 0.4 (UNITS NOT PROVIDED), QD
  5. CELEBRA [Concomitant]
     Dosage: 200 MG, QD / PRN
  6. CRESTOR [Concomitant]
     Dosage: 5 MG, QD

REACTIONS (8)
  - Vomiting [Unknown]
  - Diarrhoea [Unknown]
  - Dehydration [Unknown]
  - Malaise [Unknown]
  - Fall [Unknown]
  - Haemoglobin decreased [Unknown]
  - Anaemia [Recovered/Resolved]
  - Lower extremity mass [Unknown]
